FAERS Safety Report 23746065 (Version 1)
Quarter: 2024Q2

REPORT INFORMATION
  Report Type: Spontaneous
  Country: IT (occurrence: IT)
  Receive Date: 20240416
  Receipt Date: 20240416
  Transmission Date: 20240715
  Serious: Yes (Hospitalization)
  Sender: FDA-Public Use
  Company Number: IT-SANDOZ-SDZ2024IT039179

PATIENT
  Sex: Male

DRUGS (13)
  1. TACROLIMUS [Suspect]
     Active Substance: TACROLIMUS
     Indication: Immunosuppression
     Dosage: 2.5-3 MG/DAY BID
     Route: 065
  2. BASILIXIMAB [Concomitant]
     Active Substance: BASILIXIMAB
     Indication: Immunosuppression
     Dosage: UNK
     Route: 065
  3. LEVOCARNITINE [Concomitant]
     Active Substance: LEVOCARNITINE
     Indication: Metabolic disorder
     Dosage: 100 MG/KG
     Route: 065
  4. LEVOCARNITINE [Concomitant]
     Active Substance: LEVOCARNITINE
     Dosage: 100 MG/KG
     Route: 065
  5. LEVOCARNITINE [Concomitant]
     Active Substance: LEVOCARNITINE
     Dosage: 100 MG/KG
     Route: 065
  6. LEVOCARNITINE [Concomitant]
     Active Substance: LEVOCARNITINE
     Dosage: 100 MG/KG
     Route: 065
  7. MYCOPHENOLATE MOFETIL [Concomitant]
     Active Substance: MYCOPHENOLATE MOFETIL
     Indication: Immunosuppression
     Dosage: 500-750 MG/DAY
     Route: 065
  8. PROTEIN [Concomitant]
     Active Substance: PROTEIN
     Indication: Metabolic disorder
     Dosage: 30 G
     Route: 065
  9. PROTEIN [Concomitant]
     Active Substance: PROTEIN
     Dosage: 45 G, QD
     Route: 065
  10. PROTEIN [Concomitant]
     Active Substance: PROTEIN
     Dosage: 45 G, QD
     Route: 065
  11. PROTEIN [Concomitant]
     Active Substance: PROTEIN
     Dosage: 45 G, QD
     Route: 065
  12. SODIUM BICARBONATE [Concomitant]
     Active Substance: SODIUM BICARBONATE
     Indication: Product used for unknown indication
     Dosage: 7.5 G/DAY IN THREE DOSES
     Route: 065
  13. VALACYCLOVIR [Concomitant]
     Active Substance: VALACYCLOVIR HYDROCHLORIDE
     Indication: Visual acuity tests abnormal
     Dosage: UNK
     Route: 065

REACTIONS (1)
  - Toxicity to various agents [Unknown]
